FAERS Safety Report 6488575-2 (Version None)
Quarter: 2009Q4

REPORT INFORMATION
  Report Type: 
  Country: None (occurrence: None)
  Receive Date: 20091210
  Receipt Date: 20091202
  Transmission Date: 20100525
  Serious: Yes (Hospitalization)
  Sender: FDA-Public Use
  Company Number: JP-ABBOTT-09P-087-0595832-00

PATIENT
  Sex: Female

DRUGS (3)
  1. LEUPLIN FOR INJECTION 3.75 MG [Suspect]
     Indication: UTERINE LEIOMYOMA
     Route: 058
     Dates: start: 20090729, end: 20090729
  2. SEVOFLURANE [Concomitant]
     Indication: ANAESTHESIA
  3. PROPOFOL [Concomitant]
     Indication: ANAESTHESIA

REACTIONS (2)
  - DEEP VEIN THROMBOSIS [None]
  - PULMONARY EMBOLISM [None]
